FAERS Safety Report 18283711 (Version 1)
Quarter: 2020Q3

REPORT INFORMATION
  Report Type: Spontaneous
  Country: DE (occurrence: DE)
  Receive Date: 20200918
  Receipt Date: 20200918
  Transmission Date: 20201103
  Serious: Yes (Hospitalization)
  Sender: FDA-Public Use
  Company Number: DE-009507513-2009DEU005827

PATIENT
  Age: 93 Year
  Sex: Female

DRUGS (6)
  1. APIDRA [Suspect]
     Active Substance: INSULIN GLULISINE
     Dosage: 24 INTERNATIONAL UNIT, QD (8 IE, 1?1?1?0)
     Route: 058
  2. ATORVASTATIN [Concomitant]
     Active Substance: ATORVASTATIN
     Dosage: 20 MILLIGRAM, QD (20 MG, 0?0?1?0, TABLET)
     Route: 048
  3. INSULIN GLARGINE [Suspect]
     Active Substance: INSULIN GLARGINE
     Dosage: 8 INTERNATIONAL UNIT, QD (8 I.U. IN THE NIGHT)
     Route: 058
  4. DIPYRONE [Concomitant]
     Active Substance: DIPYRONE
     Dosage: 500 MILLIGRAM, Q6H (500 MG, 1?1?1?1, TABLET)
     Route: 048
  5. TORSEMIDE. [Concomitant]
     Active Substance: TORSEMIDE
     Dosage: 10 MILLIGRAM, QD (10 MG, 1?0?0?0, TABLET)
     Route: 048
  6. SITAGLIPTIN PHOSPHATE [Suspect]
     Active Substance: SITAGLIPTIN PHOSPHATE
     Dosage: 100 MILLIGRAM, QD (100 MG, 1?0?0?0, TABLET)
     Route: 048

REACTIONS (5)
  - Confusional state [Unknown]
  - Loss of consciousness [Unknown]
  - Hypoglycaemia [Unknown]
  - Disorientation [Unknown]
  - Fall [Unknown]
